FAERS Safety Report 22050638 (Version 1)
Quarter: 2023Q1

REPORT INFORMATION
  Report Type: Spontaneous
  Country: US (occurrence: None)
  Receive Date: 20230228
  Receipt Date: 20230228
  Transmission Date: 20230417
  Serious: Yes (Life-Threatening, Hospitalization, Disabling)
  Sender: FDA-Public Use
  Company Number: None

PATIENT
  Age: 74 Year
  Sex: Female
  Weight: 146.51 kg

DRUGS (1)
  1. CIMZIA [Suspect]
     Active Substance: CERTOLIZUMAB PEGOL
     Indication: Ankylosing spondylitis
     Dosage: FREQUENCY : MONTHLY;?
     Route: 048
     Dates: start: 202104, end: 20221226

REACTIONS (8)
  - Cardiac failure [None]
  - Eye disorder [None]
  - Rash [None]
  - Rash [None]
  - Joint swelling [None]
  - Weight increased [None]
  - Blood test abnormal [None]
  - Infection [None]

NARRATIVE: CASE EVENT DATE: 20221011
